FAERS Safety Report 5140543-9 (Version None)
Quarter: 2006Q4

REPORT INFORMATION
  Report Type: 
  Country: None (occurrence: None)
  Receive Date: 20061031
  Receipt Date: 20061025
  Transmission Date: 20070319
  Serious: Yes (Hospitalization)
  Sender: FDA-Public Use
  Company Number: US-JNJFOC-20061006109

PATIENT
  Sex: Male
  Weight: 74.84 kg

DRUGS (11)
  1. TYLENOL (CAPLET) [Suspect]
  2. TYLENOL (CAPLET) [Suspect]
     Indication: ARTHRITIS
  3. ADALAT [Concomitant]
     Indication: HYPERTENSION
  4. ISOSORBIDE [Concomitant]
     Indication: CARDIAC DISORDER
  5. LASIX [Concomitant]
     Indication: HYPERTENSION
  6. VYTORIN [Concomitant]
     Indication: BLOOD CHOLESTEROL INCREASED
  7. SPIRONOLACTONE [Concomitant]
     Indication: HYPERTENSION
  8. AMBIEN [Concomitant]
     Indication: SLEEP DISORDER
  9. ZOLOFT [Concomitant]
     Indication: DEPRESSION
  10. COREG [Concomitant]
     Indication: CARDIAC DISORDER
  11. MULTI-VITAMIN [Concomitant]

REACTIONS (1)
  - HAEMATURIA [None]
